FAERS Safety Report 5596816-9 (Version None)
Quarter: 2008Q1

REPORT INFORMATION
  Report Type: 
  Country: None (occurrence: None)
  Receive Date: 20080119
  Receipt Date: 20080108
  Transmission Date: 20080703
  Serious: Yes (Hospitalization)
  Sender: FDA-Public Use
  Company Number: FR-PFIZER INC-2008003622

PATIENT
  Age: 86 Year
  Sex: Male

DRUGS (1)
  1. ZOXAN LP [Suspect]
     Indication: BENIGN PROSTATIC HYPERPLASIA

REACTIONS (1)
  - GASTROINTESTINAL OBSTRUCTION [None]
